FAERS Safety Report 14244692 (Version 4)
Quarter: 2018Q1

REPORT INFORMATION
  Report Type: Spontaneous
  Country: CA (occurrence: CA)
  Receive Date: 20171201
  Receipt Date: 20180201
  Transmission Date: 20180508
  Serious: Yes (Hospitalization)
  Sender: FDA-Public Use
  Company Number: CA-PFIZER INC-2017487576

PATIENT
  Age: 70 Year
  Sex: Male
  Weight: 78.2 kg

DRUGS (5)
  1. DILANTIN [Suspect]
     Active Substance: PHENYTOIN
     Dosage: 100 MG, 2 CAPSULES IN THE MORNING AND 3 CAPSULES AT NIGHT
     Route: 048
     Dates: start: 20150526
  2. ASPIRIN. [Concomitant]
     Active Substance: ASPIRIN
     Indication: PROPHYLAXIS
     Dosage: 81 MG, DAILY
     Route: 048
     Dates: start: 2014
  3. CALCIUM [Concomitant]
     Active Substance: CALCIUM
     Indication: PROPHYLAXIS
     Dosage: UNK UNK, 1X/DAY
  4. VITAMIN D3 [Concomitant]
     Active Substance: CHOLECALCIFEROL
     Indication: PROPHYLAXIS
     Dosage: UNK UNK, 1X/DAY
  5. DILANTIN [Suspect]
     Active Substance: PHENYTOIN
     Indication: PROPHYLAXIS
     Dosage: 200 MG Q (EVERY) AM (MORNING), 300 MG Q (EVERY) PM (NIGHT)
     Route: 048
     Dates: start: 2014

REACTIONS (7)
  - Toxicity to various agents [Recovered/Resolved]
  - Product quality issue [Recovering/Resolving]
  - Speech disorder [Unknown]
  - Abnormal behaviour [Unknown]
  - Slow response to stimuli [Unknown]
  - Drug level increased [Recovered/Resolved]
  - Tremor [Unknown]

NARRATIVE: CASE EVENT DATE: 20171030
